FAERS Safety Report 6222875-6 (Version None)
Quarter: 2009Q2

REPORT INFORMATION
  Report Type: 
  Country: None (occurrence: None)
  Receive Date: 20090611
  Receipt Date: 20090603
  Transmission Date: 20091009
  Serious: Yes (Hospitalization, Disabling)
  Sender: FDA-Public Use
  Company Number: BR-ASTRAZENECA-2009UW14240

PATIENT
  Age: 33 Year
  Sex: Female

DRUGS (5)
  1. SYMBICORT [Suspect]
     Indication: ASTHMA
     Dosage: 160/4.5 PRN
     Route: 055
     Dates: start: 20090513
  2. BEROTEC [Concomitant]
     Indication: ASTHMA
     Route: 055
     Dates: end: 20090501
  3. ATROVENT [Concomitant]
     Indication: ASTHMA
     Route: 055
     Dates: end: 20090501
  4. CEFALEXIN [Concomitant]
     Indication: VAGINAL INFECTION
     Dosage: QID
     Route: 048
     Dates: start: 20090520
  5. UNKNOWN OINTMENT [Concomitant]
     Indication: VAGINAL INFECTION
     Dosage: QID
     Route: 048
     Dates: start: 20090520

REACTIONS (4)
  - AMNIOTIC FLUID VOLUME DECREASED [None]
  - ASTHMA [None]
  - DRUG EXPOSURE DURING PREGNANCY [None]
  - VAGINAL INFECTION [None]
